FAERS Safety Report 10618594 (Version 1)
Quarter: 2014Q4

REPORT INFORMATION
  Report Type: Spontaneous
  Country: US (occurrence: None)
  Receive Date: 20141125
  Receipt Date: 20141125
  Transmission Date: 20150529
  Serious: Yes (Hospitalization)
  Sender: FDA-Public Use
  Company Number: 2014-US-014281

PATIENT
  Age: 30 Year
  Sex: Female
  Weight: 47.6 kg

DRUGS (5)
  1. XYREM [Suspect]
     Active Substance: SODIUM OXYBATE
     Indication: NARCOLEPSY
     Route: 048
     Dates: start: 201301
  2. EFFEXOR (VENLAFAXINE HYDROCHLORIDE) [Concomitant]
  3. ZOFRAN (ONDANSETRON) [Concomitant]
  4. PROVIGIL [Concomitant]
     Active Substance: MODAFINIL
  5. IRON (IRON) [Concomitant]
     Active Substance: IRON

REACTIONS (1)
  - Rhabdomyolysis [None]

NARRATIVE: CASE EVENT DATE: 20141023
